FAERS Safety Report 12072326 (Version 1)
Quarter: 2016Q1

REPORT INFORMATION
  Report Type: Spontaneous
  Country: US (occurrence: None)
  Receive Date: 20160211
  Receipt Date: 20160211
  Transmission Date: 20160526
  Serious: Yes (Life-Threatening, Hospitalization, Disabling)
  Sender: FDA-Public Use
  Company Number: None

PATIENT
  Age: 23 Year
  Sex: Female
  Weight: 63.5 kg

DRUGS (2)
  1. XYREM [Suspect]
     Active Substance: SODIUM OXYBATE
     Indication: CATAPLEXY
     Dosage: LIQUID DOSE, AT BEDTIME, TAKEN BY MOUTH
     Dates: start: 20110201, end: 20130801
  2. XYREM [Suspect]
     Active Substance: SODIUM OXYBATE
     Indication: NARCOLEPSY
     Dosage: LIQUID DOSE, AT BEDTIME, TAKEN BY MOUTH
     Dates: start: 20110201, end: 20130801

REACTIONS (3)
  - Schizophrenia [None]
  - Psychotic disorder [None]
  - Abnormal behaviour [None]

NARRATIVE: CASE EVENT DATE: 20120901
